FAERS Safety Report 23075027 (Version 1)
Quarter: 2023Q4

REPORT INFORMATION
  Report Type: Spontaneous
  Country: UA (occurrence: UA)
  Receive Date: 20231017
  Receipt Date: 20231017
  Transmission Date: 20240109
  Serious: Yes (Hospitalization, Other)
  Sender: FDA-Public Use
  Company Number: UA-BAYER-2023A141567

PATIENT
  Age: 29 Year
  Sex: Female

DRUGS (1)
  1. DROSPIRENONE\ETHINYL ESTRADIOL [Suspect]
     Active Substance: DROSPIRENONE\ETHINYL ESTRADIOL
     Route: 048

REACTIONS (8)
  - Malaise [None]
  - Yellow skin [None]
  - Ocular icterus [None]
  - Pruritus [Recovered/Resolved]
  - Decreased appetite [None]
  - Drug-induced liver injury [None]
  - Jaundice [Not Recovered/Not Resolved]
  - Peliosis hepatis [None]

NARRATIVE: CASE EVENT DATE: 20230612
